FAERS Safety Report 21346910 (Version 1)
Quarter: 2022Q3

REPORT INFORMATION
  Report Type: Spontaneous
  Country: US (occurrence: None)
  Receive Date: 20220916
  Receipt Date: 20220916
  Transmission Date: 20221026
  Serious: Yes (Hospitalization)
  Sender: FDA-Public Use
  Company Number: None

PATIENT
  Age: 58 Year
  Sex: Male
  Weight: 82 kg

DRUGS (4)
  1. NITROSTAT [Suspect]
     Active Substance: NITROGLYCERIN
     Indication: Dyspnoea
     Dosage: 0.4 MG ONCE SUBLINGUAL
     Route: 060
     Dates: start: 20220613, end: 20220613
  2. KETOROLAC TROMETHAMINE [Suspect]
     Active Substance: KETOROLAC TROMETHAMINE
     Indication: Pain
     Dosage: 60 MG  ONCE IM
     Route: 030
     Dates: start: 20220613, end: 20220613
  3. DEXAMETHASONE [Suspect]
     Active Substance: DEXAMETHASONE
  4. HYDROMORPHONE [Suspect]
     Active Substance: HYDROMORPHONE

REACTIONS (1)
  - Anaphylactic reaction [None]

NARRATIVE: CASE EVENT DATE: 20220613
